APPROVED DRUG PRODUCT: IQIRVO
Active Ingredient: ELAFIBRANOR
Strength: 80MG
Dosage Form/Route: TABLET;ORAL
Application: N218860 | Product #001
Applicant: IPSEN BIOPHARMACEUTICALS INC
Approved: Jun 10, 2024 | RLD: Yes | RS: Yes | Type: RX

PATENTS:
Patent 11857523 | Expires: Mar 30, 2037
Patent 11850223 | Expires: Mar 30, 2037
Patent 11331292 | Expires: Mar 30, 2037
Patent 11185519 | Expires: Mar 30, 2037
Patent 12310935 | Expires: Mar 30, 2037
Patent 12295928 | Expires: Mar 30, 2037
Patent 12295927 | Expires: Mar 30, 2037
Patent 12233038 | Expires: Mar 30, 2037

EXCLUSIVITY:
Code: NCE | Date: Jun 10, 2029
Code: ODE-486 | Date: Jun 10, 2031